FAERS Safety Report 24836864 (Version 1)
Quarter: 2025Q1

REPORT INFORMATION
  Report Type: Spontaneous
  Country: US (occurrence: US)
  Receive Date: 20250113
  Receipt Date: 20250113
  Transmission Date: 20250409
  Serious: Yes (Hospitalization)
  Sender: SANOFI AVENTIS
  Company Number: US-SA-2025SA009399

PATIENT
  Age: 68 Year
  Sex: Female

DRUGS (1)
  1. KEVZARA [Suspect]
     Active Substance: SARILUMAB
     Indication: Rheumatoid arthritis
     Dosage: 200 MG, QOW
     Route: 058
     Dates: start: 202412, end: 202412

REACTIONS (4)
  - Drug hypersensitivity [Unknown]
  - Pain [Unknown]
  - Tremor [Unknown]
  - Vomiting [Unknown]

NARRATIVE: CASE EVENT DATE: 20241201
